FAERS Safety Report 23294701 (Version 1)
Quarter: 2023Q4

REPORT INFORMATION
  Report Type: Spontaneous
  Country: ES (occurrence: ES)
  Receive Date: 20231213
  Receipt Date: 20231213
  Transmission Date: 20240109
  Serious: Yes (Other)
  Sender: FDA-Public Use
  Company Number: None

PATIENT
  Age: 48 Year

DRUGS (7)
  1. FLUOROURACIL [Suspect]
     Active Substance: FLUOROURACIL
     Indication: Adenocarcinoma of colon
     Route: 065
     Dates: start: 20200508
  2. CEFTRIAXONE [Suspect]
     Active Substance: CEFTRIAXONE\CEFTRIAXONE SODIUM
     Indication: Intestinal perforation
     Dosage: CEFTRIAXONE LDP TORLAN 250 MG IV POWDER AND SOLVENT FOR INJECTABLE SOLUTION EFG, 100 VIALS + 100
     Route: 065
     Dates: start: 20200516, end: 20200518
  3. PIPERACILLIN SODIUM\TAZOBACTAM SODIUM [Suspect]
     Active Substance: PIPERACILLIN SODIUM\TAZOBACTAM SODIUM
     Indication: Intestinal perforation
     Route: 065
     Dates: start: 20200518, end: 20200521
  4. LEUCOVORIN CALCIUM [Suspect]
     Active Substance: LEUCOVORIN CALCIUM
     Indication: Adenocarcinoma of colon
     Dosage: FOLINATO CALCIO (1587CO)
     Route: 065
     Dates: start: 20200508
  5. OXALIPLATIN [Suspect]
     Active Substance: OXALIPLATIN
     Indication: Adenocarcinoma of colon
     Dosage: OXALIPLATINO (7351A)
     Route: 065
     Dates: start: 20200508
  6. MEROPENEM [Suspect]
     Active Substance: MEROPENEM
     Indication: Intestinal perforation
     Route: 065
     Dates: start: 20200521
  7. TEICOPLANIN [Suspect]
     Active Substance: TEICOPLANIN
     Indication: Intestinal perforation
     Route: 065
     Dates: start: 20200521

REACTIONS (1)
  - Toxic skin eruption [Unknown]

NARRATIVE: CASE EVENT DATE: 20200501
